FAERS Safety Report 4427718-9 (Version None)
Quarter: 2004Q3

REPORT INFORMATION
  Report Type: 
  Country: None (occurrence: None)
  Receive Date: 20040812
  Receipt Date: 20040802
  Transmission Date: 20050211
  Serious: Yes (Other)
  Sender: FDA-Public Use
  Company Number: 2004226515FR

PATIENT
  Age: 45 Year
  Sex: Male

DRUGS (4)
  1. ZYVOX [Suspect]
     Dosage: 600 MG, BID IV
     Route: 042
  2. ZYVOX [Suspect]
     Dosage: 600, ORAL
     Route: 048
  3. BETA 2 MIMETIC [Concomitant]
  4. CORTICOSTEROIDS [Concomitant]

REACTIONS (1)
  - RHABDOMYOLYSIS [None]
